FAERS Safety Report 8984205 (Version 1)
Quarter: 2012Q4

REPORT INFORMATION
  Report Type: 
  Country: US (occurrence: US)
  Receive Date: 20121226
  Receipt Date: 20121226
  Transmission Date: 20130627
  Serious: Yes (Other)
  Sender: FDA-Public Use
  Company Number: PHEH2012US025235

PATIENT
  Sex: Male
  Weight: 92.63 kg

DRUGS (1)
  1. GLEEVEC [Suspect]
     Dosage: 400 mg, QD
     Route: 048

REACTIONS (6)
  - Fall [Unknown]
  - Deep vein thrombosis [Unknown]
  - Skin injury [Unknown]
  - Bursitis [Unknown]
  - Weight increased [Unknown]
  - Oedema peripheral [Unknown]
